FAERS Safety Report 14128499 (Version 1)
Quarter: 2017Q4

REPORT INFORMATION
  Report Type: Spontaneous
  Country: GB (occurrence: GB)
  Receive Date: 20171026
  Receipt Date: 20171026
  Transmission Date: 20180321
  Serious: Yes (Other)
  Sender: FDA-Public Use
  Company Number: PHFR2017GB008297

PATIENT
  Age: 19 Year
  Sex: Female
  Weight: 57.15 kg

DRUGS (1)
  1. AMOXICILLIN. [Suspect]
     Active Substance: AMOXICILLIN
     Indication: LARYNGITIS
     Dosage: 500 MG, UNK
     Route: 048
     Dates: start: 20171008

REACTIONS (2)
  - Diarrhoea [Recovering/Resolving]
  - Malaise [Recovering/Resolving]

NARRATIVE: CASE EVENT DATE: 20171009
